FAERS Safety Report 8532003 (Version 2)
Quarter: 2013Q3

REPORT INFORMATION
  Report Type: Report from Study
  Country: AU (occurrence: AU)
  Receive Date: 20120426
  Receipt Date: 20130813
  Transmission Date: 20140515
  Serious: Yes (Hospitalization, Disabling, Other)
  Sender: FDA-Public Use
  Company Number: AU-ROCHE-1062394

PATIENT
  Age: 81 Year
  Sex: Female

DRUGS (1)
  1. LUCENTIS [Suspect]
     Indication: AGE-RELATED MACULAR DEGENERATION
     Route: 050
     Dates: start: 201004

REACTIONS (5)
  - Cardiac disorder [Recovered/Resolved]
  - Lung infection [Recovered/Resolved]
  - Circulatory collapse [Recovering/Resolving]
  - Blindness unilateral [Not Recovered/Not Resolved]
  - Cataract [Recovered/Resolved]
